FAERS Safety Report 7352485-9 (Version None)
Quarter: 2011Q1

REPORT INFORMATION
  Report Type: 
  Country: None (occurrence: None)
  Receive Date: 20110315
  Receipt Date: 20110309
  Transmission Date: 20110831
  Serious: Yes (Death, Hospitalization, Other)
  Sender: FDA-Public Use
  Company Number: PHEH2009US00719

PATIENT
  Sex: Female

DRUGS (64)
  1. ASPIRIN [Concomitant]
     Dosage: 81 MG, QD
  2. CEFTIN [Concomitant]
  3. CYMBALTA [Concomitant]
  4. METRONIDAZOLE [Concomitant]
     Dosage: UNK
  5. FOSAMAX [Concomitant]
     Dosage: 70 MG, QW
  6. COUMADIN [Concomitant]
  7. KYTRIL [Concomitant]
  8. LIDOCAINE [Concomitant]
  9. VIOXX [Concomitant]
  10. LEVAQUIN [Concomitant]
     Dosage: UNK
     Dates: start: 20071101, end: 20071101
  11. PROVIGIL [Concomitant]
     Dosage: UNK
  12. GUAIFENESIN DM [Concomitant]
     Dosage: 10-100MG/5ML / EVERY 4 HRS PRN
  13. DETROL [Concomitant]
     Dosage: UNK
  14. ATIVAN [Concomitant]
     Dosage: UNK
  15. HALDOL [Concomitant]
     Dosage: UNK
  16. ERYTHROMYCIN [Concomitant]
     Dosage: UNK
  17. DECADRON [Concomitant]
  18. NAPROSYN [Concomitant]
  19. BENADRYL ^ACHE^ [Concomitant]
  20. TAGAMET [Concomitant]
  21. UNASYN [Concomitant]
  22. XELODA [Concomitant]
  23. DOXIL [Concomitant]
  24. DILANTIN                                /CAN/ [Concomitant]
  25. LAMICTAL [Concomitant]
  26. ABRAXANE [Concomitant]
  27. MARCAINE [Concomitant]
  28. ZITHROMAX [Concomitant]
  29. ROXANOL [Concomitant]
  30. ZOSYN [Concomitant]
     Dosage: UNK
  31. LIDODERM [Concomitant]
     Dosage: UNK
  32. PERCOCET [Concomitant]
     Dosage: UNK
  33. METOPROLOL [Concomitant]
     Dosage: 25 MG/ TWICE DAILY
     Route: 048
  34. NORVASC [Concomitant]
     Dosage: 5 MG, QD
  35. AVAPRO [Concomitant]
     Dosage: 300 MG, QD
  36. SYNTHROID [Concomitant]
     Dosage: 0.175 MG, QD
  37. ARIMIDEX [Concomitant]
     Dosage: 1 MG, QD
  38. MEGACE [Concomitant]
  39. THEO-DUR [Concomitant]
  40. ZOMETA [Suspect]
     Dosage: 4 MG, QMO
     Dates: end: 20050926
  41. RADIATION THERAPY [Concomitant]
  42. PREVACID [Concomitant]
  43. PERIDEX [Concomitant]
  44. GEMZAR [Concomitant]
  45. TOBRAMYCIN [Concomitant]
  46. NAVELBINE [Concomitant]
  47. DURAGESIC-50 [Concomitant]
  48. ROCEPHIN [Concomitant]
  49. RISPERDONE [Concomitant]
     Dosage: 0.5 MG / TWICE DAILY
     Route: 048
  50. SENNA [Concomitant]
     Dosage: UNK
  51. LIPITOR [Concomitant]
     Dosage: 20 MG, QD
  52. TAXOTERE [Concomitant]
     Dosage: UNK
  53. KEPPRA [Concomitant]
  54. MIACALCIN [Concomitant]
  55. PREDNISONE [Concomitant]
  56. FLAGYL [Concomitant]
     Dosage: UNK
  57. AREDIA [Suspect]
  58. CHEMOTHERAPEUTICS NOS [Concomitant]
  59. LOVENOX [Concomitant]
  60. TYLENOL [Concomitant]
  61. LASIX [Concomitant]
  62. DEPO-MEDROL + LIDOCAINE [Concomitant]
  63. NYSTATIN [Concomitant]
  64. RISPERDAL [Concomitant]
     Dosage: UNK

REACTIONS (81)
  - TREMOR [None]
  - TOOTH LOSS [None]
  - BACK PAIN [None]
  - SYNOVIAL CYST [None]
  - THROMBOPHLEBITIS [None]
  - ISCHAEMIA [None]
  - PYREXIA [None]
  - DELIRIUM [None]
  - UMBILICAL HERNIA [None]
  - COUGH [None]
  - CARDIOMEGALY [None]
  - GAIT DISTURBANCE [None]
  - RIB FRACTURE [None]
  - CANDIDIASIS [None]
  - EPISTAXIS [None]
  - ELECTROENCEPHALOGRAM ABNORMAL [None]
  - DEPRESSION [None]
  - DYSSTASIA [None]
  - UNRESPONSIVE TO STIMULI [None]
  - DENTAL CARIES [None]
  - ONYCHOMYCOSIS [None]
  - CONJUNCTIVITIS [None]
  - CELLULITIS [None]
  - METASTASES TO BONE [None]
  - CHROMATOPSIA [None]
  - CONFUSIONAL STATE [None]
  - EATING DISORDER SYMPTOM [None]
  - HYPOXIA [None]
  - OEDEMA PERIPHERAL [None]
  - OSTEOARTHRITIS [None]
  - BURSITIS [None]
  - HEADACHE [None]
  - OSTEONECROSIS [None]
  - POSITIVE ROMBERGISM [None]
  - MASS [None]
  - ATELECTASIS [None]
  - COLONIC POLYP [None]
  - VEIN DISORDER [None]
  - MENTAL STATUS CHANGES [None]
  - HALLUCINATION [None]
  - METASTASES TO LIVER [None]
  - CONSTIPATION [None]
  - CEREBRAL DISORDER [None]
  - PAIN IN EXTREMITY [None]
  - FOOT DEFORMITY [None]
  - PATHOLOGICAL FRACTURE [None]
  - PLEURAL EFFUSION [None]
  - DRY MOUTH [None]
  - NECK PAIN [None]
  - GINGIVAL EROSION [None]
  - SYNCOPE [None]
  - MENISCUS LESION [None]
  - CSF TEST ABNORMAL [None]
  - RADIUS FRACTURE [None]
  - ASTHENIA [None]
  - MICTURITION URGENCY [None]
  - DEATH [None]
  - OSTEONECROSIS OF JAW [None]
  - BONE DISORDER [None]
  - UTERINE LEIOMYOMA [None]
  - CERVICAL SPINAL STENOSIS [None]
  - SYNOVITIS [None]
  - LOSS OF CONSCIOUSNESS [None]
  - NAUSEA [None]
  - DEEP VEIN THROMBOSIS [None]
  - FOOT FRACTURE [None]
  - NEUROPATHY PERIPHERAL [None]
  - BLINDNESS UNILATERAL [None]
  - ANXIETY [None]
  - DECREASED APPETITE [None]
  - CONVULSION [None]
  - POOR PERSONAL HYGIENE [None]
  - TOOTH DISORDER [None]
  - SWELLING [None]
  - PERICARDIAL EFFUSION [None]
  - HERPES ZOSTER [None]
  - LETHARGY [None]
  - PNEUMONIA [None]
  - BRAIN SCAN ABNORMAL [None]
  - OSTEOMYELITIS [None]
  - BONE LESION [None]
